FAERS Safety Report 20483851 (Version 1)
Quarter: 2022Q1

REPORT INFORMATION
  Report Type: Spontaneous
  Country: SE (occurrence: SE)
  Receive Date: 20220217
  Receipt Date: 20220217
  Transmission Date: 20220423
  Serious: Yes (Hospitalization)
  Sender: FDA-Public Use
  Company Number: None

PATIENT
  Age: 81 Year
  Sex: Female
  Weight: 62 kg

DRUGS (14)
  1. IRINOTECAN [Suspect]
     Active Substance: IRINOTECAN
     Indication: Metastatic gastric cancer
     Dosage: 20 MG / ML, SOLUTION, DOSAGE: 240 MG DAY 1 Q3W
     Route: 042
     Dates: start: 20210906, end: 20211117
  2. MOVICOL [Concomitant]
     Active Substance: POLYETHYLENE GLYCOL 3350\POTASSIUM CHLORIDE\SODIUM BICARBONATE\SODIUM CHLORIDE
     Dosage: ORAL SOLUTION IN SACHET, DOSE: 1, AS NEEDED
     Route: 048
     Dates: start: 20210906
  3. SODIUM PICOSULFATE [Concomitant]
     Active Substance: SODIUM PICOSULFATE
     Dosage: 7.5 MG / ML  DOSE: 1
     Route: 048
     Dates: start: 20210906
  4. BETAPRED [Concomitant]
     Active Substance: BETAMETHASONE SODIUM PHOSPHATE
     Dosage: 0.5 MG, 16 TABLETS DAY 1-3 Q3W
     Route: 048
     Dates: start: 20210906, end: 20211119
  5. Betolvex [Concomitant]
     Dosage: 1X1
     Route: 048
     Dates: start: 20200428
  6. LEVOTHYROXINE SODIUM [Concomitant]
     Active Substance: LEVOTHYROXINE SODIUM
     Dosage: 1X1
     Route: 048
     Dates: start: 20210608
  7. ONDANSETRON [Concomitant]
     Active Substance: ONDANSETRON
     Dosage: 1 TABLET DAY 1 + 2 Q3W
     Route: 048
     Dates: start: 20210906, end: 20211118
  8. LEUCOVORIN CALCIUM [Concomitant]
     Active Substance: LEUCOVORIN CALCIUM
     Dosage: 10 MG/ML 100 MG DAY 1+2 Q3W
     Route: 042
     Dates: start: 20210906, end: 20211118
  9. ENALAPRIL MALEATE [Concomitant]
     Active Substance: ENALAPRIL MALEATE
     Dosage: 2X1
     Route: 048
     Dates: start: 20180525
  10. Folacin [Concomitant]
     Dosage: 1X1
     Route: 048
     Dates: start: 20190611
  11. FLUOROURACIL [Concomitant]
     Active Substance: FLUOROURACIL
     Dosage: 50 MG/ML 660 MG DAY1+2 Q3W
     Route: 042
     Dates: start: 20210906, end: 20211118
  12. LOPERAMIDE [Concomitant]
     Active Substance: LOPERAMIDE
     Dosage: AS NEEDED
     Route: 048
     Dates: start: 20210906
  13. UREA [Concomitant]
     Active Substance: UREA
     Dosage: AS NEEDED
     Route: 003
     Dates: start: 20210906
  14. PRIMPERAN [Concomitant]
     Active Substance: METOCLOPRAMIDE HYDROCHLORIDE
     Dosage: AS NEEDED
     Route: 048
     Dates: start: 20210906

REACTIONS (1)
  - Pneumonitis [Recovering/Resolving]

NARRATIVE: CASE EVENT DATE: 20211116
